FAERS Safety Report 4758718-7 (Version None)
Quarter: 2005Q3

REPORT INFORMATION
  Report Type: 
  Country: None (occurrence: None)
  Receive Date: 20050829
  Receipt Date: 20050825
  Transmission Date: 20060218
  Serious: Yes (Life-Threatening, Hospitalization)
  Sender: FDA-Public Use
  Company Number: 216432

PATIENT
  Age: 75 Year
  Sex: Male

DRUGS (8)
  1. AVASTIN [Suspect]
     Indication: COLON CANCER
     Dosage: 658 MG, Q3W, INTRAVENOUS
     Route: 042
     Dates: start: 20050528
  2. CAPECITABINET(CAPECITABINE) [Suspect]
     Indication: COLON CANCER
     Dosage: 2000 MG, BID, ORAL
     Route: 048
     Dates: start: 20050628
  3. OXALIPLATIN(OXALILATIN) [Suspect]
     Indication: COLON CANCER
     Dosage: 273 MG, Q3W, INTRAVENOUS
     Route: 042
     Dates: start: 20050628
  4. OXALIPLATIN(OXALIPLATIN) [Suspect]
  5. ELTROXIN (LEVOTHYROXINE SODIUM) [Concomitant]
  6. PANTOLOC (PANTOPRAZOLE) [Concomitant]
  7. METOPROLOL TARTRATE [Concomitant]
  8. ATACAND [Concomitant]

REACTIONS (6)
  - DIARRHOEA [None]
  - ESCHERICHIA URINARY TRACT INFECTION [None]
  - EYELID PTOSIS [None]
  - MOVEMENT DISORDER [None]
  - PYREXIA [None]
  - VISION BLURRED [None]
